FAERS Safety Report 24610829 (Version 1)
Quarter: 2024Q4

REPORT INFORMATION
  Report Type: Spontaneous
  Country: GB (occurrence: GB)
  Receive Date: 20241112
  Receipt Date: 20241112
  Transmission Date: 20250115
  Serious: Yes (Other)
  Sender: TEVA
  Company Number: None

PATIENT
  Age: 59 Year
  Sex: Female
  Weight: 70 kg

DRUGS (2)
  1. DEXAMETHASONE [Suspect]
     Active Substance: DEXAMETHASONE
     Indication: Surgery
     Route: 065
  2. CHLORAMPHENICAL AND SALBUTAMOL [Concomitant]

REACTIONS (5)
  - Depression [Unknown]
  - Aggression [Unknown]
  - Nasal vestibulitis [Unknown]
  - Blepharitis [Unknown]
  - Gingivitis [Not Recovered/Not Resolved]
